FAERS Safety Report 4310656-X (Version None)
Quarter: 2004Q1

REPORT INFORMATION
  Report Type: 
  Country: None (occurrence: None)
  Receive Date: 20040301
  Receipt Date: 20031215
  Transmission Date: 20041129
  Serious: No
  Sender: FDA-Public Use
  Company Number: WAES 0312USA02099

PATIENT

DRUGS (3)
  1. ZETIA [Suspect]
     Dosage: PO
     Route: 048
  2. WARFARIN SODIUM [Suspect]
  3. [THERAPY UNSPECIFIED] [Suspect]

REACTIONS (2)
  - ADVERSE EVENT [None]
  - DRUG INTERACTION [None]
